FAERS Safety Report 5534477-5 (Version None)
Quarter: 2007Q4

REPORT INFORMATION
  Report Type: 
  Country: None (occurrence: None)
  Receive Date: 20071205
  Receipt Date: 20071126
  Transmission Date: 20080405
  Serious: Yes (Hospitalization)
  Sender: FDA-Public Use
  Company Number: FR-ASTRAZENECA-2007CG01673

PATIENT
  Age: 23501 Day
  Sex: Female

DRUGS (9)
  1. INEXIUM [Suspect]
     Route: 048
     Dates: start: 20070817, end: 20070831
  2. THIOCOLCHICOSIDE [Suspect]
     Route: 048
     Dates: start: 20070817, end: 20070831
  3. VOLTAREN [Suspect]
     Route: 048
     Dates: start: 20070817, end: 20070831
  4. TELFAST [Suspect]
     Route: 048
     Dates: start: 20070827, end: 20070831
  5. SOLUPRED [Suspect]
     Route: 048
     Dates: start: 20070827, end: 20070831
  6. PRITORPLUS [Concomitant]
     Dosage: 80 + 12.5 MG DAILY
     Route: 048
  7. CATAPRES [Concomitant]
     Indication: HYPERTENSION
     Route: 048
  8. ATARAX [Concomitant]
     Route: 048
  9. VASTAREL [Concomitant]
     Route: 048

REACTIONS (7)
  - ALANINE AMINOTRANSFERASE INCREASED [None]
  - ASPARTATE AMINOTRANSFERASE INCREASED [None]
  - LIPASE INCREASED [None]
  - PURPURA [None]
  - RASH [None]
  - RASH ERYTHEMATOUS [None]
  - RASH MACULAR [None]
